FAERS Safety Report 8064572-0 (Version None)
Quarter: 2012Q1

REPORT INFORMATION
  Report Type: 
  Country: None (occurrence: None)
  Receive Date: 20120123
  Receipt Date: 20120113
  Transmission Date: 20120608
  Serious: Yes (Hospitalization, Other)
  Sender: FDA-Public Use
  Company Number: BR-ASTRAZENECA-2012SE02731

PATIENT
  Age: 50 Year
  Sex: Male
  Weight: 86 kg

DRUGS (5)
  1. WARFARIN SODIUM [Concomitant]
  2. ATACAND [Suspect]
     Indication: HYPERTENSION
     Route: 048
     Dates: start: 20111101
  3. ATACAND HCT [Suspect]
     Indication: HYPERTENSION
     Dosage: 16+5 MGS DAILY
     Route: 048
     Dates: start: 20110301, end: 20111101
  4. METOPROLOL SUCCINATE [Suspect]
     Indication: HYPERTENSION
     Route: 048
     Dates: start: 20111101
  5. OMEPRAZOLE [Suspect]
     Indication: GASTRITIS
     Route: 048

REACTIONS (2)
  - ATRIAL SEPTAL DEFECT [None]
  - CEREBROVASCULAR ACCIDENT [None]
